FAERS Safety Report 7227182-0 (Version None)
Quarter: 2011Q1

REPORT INFORMATION
  Report Type: 
  Country: None (occurrence: None)
  Receive Date: 20110114
  Receipt Date: 20110112
  Transmission Date: 20110831
  Serious: Yes (Other)
  Sender: FDA-Public Use
  Company Number: IT-PFIZER INC-2011008405

PATIENT
  Age: 74 Year
  Sex: Male

DRUGS (6)
  1. SUTENT [Suspect]
     Indication: RENAL NEOPLASM
     Dosage: 37.5 MG, DAILY
     Route: 048
     Dates: start: 20100916, end: 20101006
  2. GLIBOMET [Concomitant]
     Dosage: 800 MG, UNK
  3. ASCRIPTIN [Concomitant]
     Dosage: 300 MG, UNK
  4. BISOPROLOL FUMARATE [Concomitant]
     Dosage: 5 MG, UNK
  5. ROSUVASTATIN [Concomitant]
     Dosage: 10 MG, UNK
  6. DEPONIT [Concomitant]
     Dosage: 10 MG, UNK

REACTIONS (4)
  - HYPOTENSION [None]
  - PLATELET COUNT DECREASED [None]
  - FATIGUE [None]
  - HYPOTHERMIA [None]
